FAERS Safety Report 24142588 (Version 3)
Quarter: 2024Q3

REPORT INFORMATION
  Report Type: Spontaneous
  Country: NZ (occurrence: NZ)
  Receive Date: 20240726
  Receipt Date: 20240905
  Transmission Date: 20241017
  Serious: Yes (Hospitalization, Other)
  Sender: MYLAN
  Company Number: NZ-MYLANLABS-2024M1068608

PATIENT
  Age: 64 Year
  Sex: Female

DRUGS (14)
  1. CLOZARIL [Suspect]
     Active Substance: CLOZAPINE
     Indication: Schizophrenia
     Dosage: 500 MILLIGRAM, PM (NOCTE, NIGHT)
     Route: 048
     Dates: start: 20140808
  2. AMISULPRIDE [Concomitant]
     Active Substance: AMISULPRIDE
     Dosage: 700 MILLIGRAM, QD (300MG IN THE MORNING, 400MG AT NIGHT)
     Route: 065
  3. ESCITALOPRAM [Concomitant]
     Active Substance: ESCITALOPRAM OXALATE
     Dosage: 15 MILLIGRAM, QD
     Route: 065
  4. ESCITALOPRAM [Concomitant]
     Active Substance: ESCITALOPRAM OXALATE
     Dosage: 10 MILLIGRAM, AM (MANE, MORNING)
     Route: 065
  5. CLONAZEPAM [Concomitant]
     Active Substance: CLONAZEPAM
     Dosage: UNK UNK, BID, (0.25MG, 0.5MG NOCTE)
     Route: 065
  6. LITHIUM CARBONATE [Concomitant]
     Active Substance: LITHIUM CARBONATE
     Dosage: 500 MILLIGRAM, PM (NOCTE, NIGHT)
     Route: 048
  7. THYROXINE [Concomitant]
     Active Substance: LEVOTHYROXINE
     Dosage: 150 MICROGRAM, QD
     Route: 065
  8. BETAMETHASONE [Concomitant]
     Active Substance: BETAMETHASONE\BETAMETHASONE DIPROPIONATE
     Dosage: UNK, Q2W (NOCTE (NIGHT) MONDAY + THURSDAY)
     Route: 065
  9. VITAMIN D3 [Concomitant]
     Active Substance: CHOLECALCIFEROL
     Dosage: UNK, MONTHLY
     Route: 065
  10. DOCUSATE SODIUM\SENNOSIDES A AND B [Concomitant]
     Active Substance: DOCUSATE SODIUM\SENNOSIDES A AND B
     Dosage: UNK, QD
     Route: 065
  11. LEVOTHYROXINE [Concomitant]
     Active Substance: LEVOTHYROXINE\LEVOTHYROXINE SODIUM
     Dosage: UNK, PM (NOCTE, NIGHT)
     Route: 065
  12. ATROPINE [Concomitant]
     Active Substance: ATROPINE
     Dosage: 2 GTT DROPS, PM (NOCTE, NIGHT)
     Route: 065
  13. UREA [Concomitant]
     Active Substance: UREA
     Dosage: UNK
     Route: 065
  14. DOCUSATE SODIUM\SENNOSIDE B [Concomitant]
     Active Substance: DOCUSATE SODIUM\SENNOSIDE B
     Dosage: 2 DOSAGE FORM, PM
     Route: 048

REACTIONS (14)
  - Asthenia [Unknown]
  - Condition aggravated [Unknown]
  - Cerebral arteriosclerosis [Unknown]
  - Fall [Unknown]
  - Dyspnoea at rest [Unknown]
  - General physical health deterioration [Unknown]
  - Peripheral swelling [Unknown]
  - Blood thyroid stimulating hormone increased [Unknown]
  - Antipsychotic drug level increased [Unknown]
  - Mean cell volume increased [Recovering/Resolving]
  - Mean cell haemoglobin increased [Not Recovered/Not Resolved]
  - Neutrophil count increased [Unknown]
  - Haemoglobin decreased [Recovering/Resolving]
  - Haematocrit decreased [Unknown]

NARRATIVE: CASE EVENT DATE: 20240708
